FAERS Safety Report 8070826-4 (Version None)
Quarter: 2012Q1

REPORT INFORMATION
  Report Type: 
  Country: None (occurrence: None)
  Receive Date: 20120125
  Receipt Date: 20120123
  Transmission Date: 20120608
  Serious: Yes (Other)
  Sender: FDA-Public Use
  Company Number: US-GLAXOSMITHKLINE-A0962708A

PATIENT
  Age: 71 Year
  Sex: Male

DRUGS (7)
  1. LOVASTATIN [Concomitant]
  2. AMLODIPINE [Concomitant]
  3. ADVAIR DISKUS 100/50 [Suspect]
     Indication: CHRONIC OBSTRUCTIVE PULMONARY DISEASE
     Dosage: 1PUFF PER DAY
     Route: 055
     Dates: start: 20061201, end: 20070401
  4. UNSPECIFIED MEDICATIONS [Concomitant]
  5. HYDROCHLOROTHIAZIDE [Concomitant]
  6. SEREVENT [Concomitant]
  7. FUROSEMIDE [Concomitant]

REACTIONS (2)
  - VISUAL IMPAIRMENT [None]
  - CATARACT [None]
